FAERS Safety Report 8013878-X (Version None)
Quarter: 2011Q4

REPORT INFORMATION
  Report Type: 
  Country: None (occurrence: None)
  Receive Date: 20111229
  Receipt Date: 20111227
  Transmission Date: 20120403
  Serious: Yes (Other)
  Sender: FDA-Public Use
  Company Number: US-PFIZER INC-2011003763

PATIENT
  Sex: Male
  Weight: 100.68 kg

DRUGS (6)
  1. DOXIN [Concomitant]
     Indication: HYPERTENSION
     Dosage: UNK
  2. METFORMIN [Concomitant]
     Indication: TYPE 2 DIABETES MELLITUS
     Dosage: UNK
  3. LIPITOR [Suspect]
     Dosage: UNK
  4. QUINAPRIL [Concomitant]
     Indication: HYPERTENSION
     Dosage: UNK
  5. TIKOSYN [Suspect]
     Indication: EXTRASYSTOLES
     Dosage: 500 UG, 2X/DAY
     Route: 048
     Dates: start: 20101010
  6. BYSTOLIC [Concomitant]
     Indication: HYPERTENSION
     Dosage: 5 MG, UNK

REACTIONS (2)
  - MUSCULOSKELETAL PAIN [None]
  - PSORIATIC ARTHROPATHY [None]
